FAERS Safety Report 12549109 (Version 2)
Quarter: 2016Q3

REPORT INFORMATION
  Report Type: Spontaneous
  Country: CH (occurrence: ZA)
  Receive Date: 20160712
  Receipt Date: 20160727
  Transmission Date: 20161109
  Serious: Yes (Life-Threatening)
  Sender: FDA-Public Use
  Company Number: CH-LPDUSPRD-20160584

PATIENT
  Age: 76 Year
  Sex: Female
  Weight: 60 kg

DRUGS (3)
  1. AMILORETIC [Concomitant]
  2. EXFORGE [Concomitant]
     Active Substance: AMLODIPINE BESYLATE\VALSARTAN
  3. FERINJECT [Suspect]
     Active Substance: FERRIC CARBOXYMALTOSE
     Dosage: UNKNOWN
     Route: 041
     Dates: start: 20160517, end: 20160517

REACTIONS (7)
  - Anxiety [Unknown]
  - Angioedema [Unknown]
  - Urticaria [Unknown]
  - Rash generalised [Unknown]
  - Lip swelling [Unknown]
  - Erythema [Unknown]
  - Eye swelling [Unknown]

NARRATIVE: CASE EVENT DATE: 20160517
